FAERS Safety Report 20629784 (Version 1)
Quarter: 2022Q1

REPORT INFORMATION
  Report Type: Spontaneous
  Country: RU (occurrence: None)
  Receive Date: 20220323
  Receipt Date: 20220323
  Transmission Date: 20220423
  Serious: Yes (Death, Other)
  Sender: FDA-Public Use
  Company Number: 2022A121774

PATIENT
  Age: 80 Year
  Sex: Female

DRUGS (1)
  1. IRESSA [Suspect]
     Active Substance: GEFITINIB
     Indication: Adenocarcinoma
     Route: 048
     Dates: start: 2009

REACTIONS (3)
  - Death [Fatal]
  - Pneumonitis [Recovered/Resolved]
  - Blood creatinine increased [Unknown]
